FAERS Safety Report 4413500-5 (Version None)
Quarter: 2004Q3

REPORT INFORMATION
  Report Type: 
  Country: None (occurrence: None)
  Receive Date: 20040728
  Receipt Date: 20040708
  Transmission Date: 20050211
  Serious: Yes (Hospitalization)
  Sender: FDA-Public Use
  Company Number: US_000949405

PATIENT
  Age: 64 Year
  Sex: Female
  Weight: 63 kg

DRUGS (10)
  1. EVISTA [Suspect]
     Indication: OSTEOPOROSIS
     Dosage: 60 MG/1 DAY
     Dates: start: 19980801, end: 20000901
  2. FORTEO [Suspect]
     Indication: OSTEOPOROSIS
     Dates: start: 20040624
  3. MIACALCIN [Concomitant]
  4. ASPIRIN [Concomitant]
  5. AVAPRO [Concomitant]
  6. RANITIDINE [Concomitant]
  7. PREMARIN [Concomitant]
  8. ZOCOR [Concomitant]
  9. ZYRTEC [Concomitant]
  10. LIBRAX [Concomitant]

REACTIONS (16)
  - ABDOMINAL PAIN UPPER [None]
  - BODY HEIGHT DECREASED [None]
  - DISEASE RECURRENCE [None]
  - DIVERTICULITIS [None]
  - DIZZINESS [None]
  - FEELING ABNORMAL [None]
  - GENITAL ERYTHEMA [None]
  - HEADACHE [None]
  - INJECTION SITE ERYTHEMA [None]
  - MUSCLE CRAMP [None]
  - MYALGIA [None]
  - OSTEOARTHRITIS [None]
  - RENAL FAILURE [None]
  - URINARY TRACT INFECTION [None]
  - VAGINAL MYCOSIS [None]
  - WEIGHT INCREASED [None]
